FAERS Safety Report 8295087-2 (Version None)
Quarter: 2012Q2

REPORT INFORMATION
  Report Type: 
  Country: None (occurrence: None)
  Receive Date: 20120418
  Receipt Date: 20120418
  Transmission Date: 20120825
  Serious: No
  Sender: FDA-Public Use
  Company Number: US-PFIZER INC-2012087281

PATIENT
  Age: 15 Year
  Sex: Female

DRUGS (2)
  1. LO/OVRAL-28 [Suspect]
     Indication: OFF LABEL USE
     Dosage: UNK
     Dates: end: 20120201
  2. LO/OVRAL-28 [Suspect]
     Indication: VON WILLEBRAND'S DISEASE

REACTIONS (1)
  - METRORRHAGIA [None]
